FAERS Safety Report 14992022 (Version 1)
Quarter: 2018Q2

REPORT INFORMATION
  Report Type: Spontaneous
  Country: US (occurrence: US)
  Receive Date: 20180608
  Receipt Date: 20180608
  Transmission Date: 20180711
  Serious: No
  Sender: FDA-Public Use
  Company Number: US-GILEAD-2018-0342618

PATIENT
  Age: 60 Year
  Sex: Male

DRUGS (1)
  1. HARVONI [Suspect]
     Active Substance: LEDIPASVIR\SOFOSBUVIR
     Indication: PRODUCT USED FOR UNKNOWN INDICATION
     Dosage: UNKNOWN
     Route: 065

REACTIONS (14)
  - Faeces discoloured [Unknown]
  - Chromaturia [Unknown]
  - Loss of employment [Not Recovered/Not Resolved]
  - Drug dispensing error [Recovered/Resolved]
  - Influenza [Unknown]
  - Weight decreased [Unknown]
  - Dizziness [Unknown]
  - Tremor [Unknown]
  - Urine odour abnormal [Not Recovered/Not Resolved]
  - Asthenia [Unknown]
  - Feeling cold [Unknown]
  - Dark circles under eyes [Unknown]
  - Malaise [Unknown]
  - Vomiting [Unknown]
